FAERS Safety Report 5378971-9 (Version None)
Quarter: 2007Q3

REPORT INFORMATION
  Report Type: 
  Country: None (occurrence: None)
  Receive Date: 20070705
  Receipt Date: 20070627
  Transmission Date: 20080115
  Serious: Yes (Hospitalization, Other)
  Sender: FDA-Public Use
  Company Number: US-AMGEN-STX227053

PATIENT
  Sex: Female
  Weight: 73.1 kg

DRUGS (3)
  1. ENBREL [Suspect]
     Indication: RHEUMATOID ARTHRITIS
     Route: 058
     Dates: start: 20000201
  2. COUMADIN [Concomitant]
  3. NSAID [Concomitant]

REACTIONS (5)
  - ATRIAL FIBRILLATION [None]
  - DIVERTICULITIS [None]
  - INTESTINAL OBSTRUCTION [None]
  - LETHARGY [None]
  - SCIATICA [None]
